FAERS Safety Report 22175834 (Version 1)
Quarter: 2023Q2

REPORT INFORMATION
  Report Type: Report from Study
  Country: US (occurrence: US)
  Receive Date: 20230405
  Receipt Date: 20230405
  Transmission Date: 20230721
  Serious: Yes (Hospitalization, Other)
  Sender: FDA-Public Use
  Company Number: US-GILEAD-2023-0622687

PATIENT
  Age: 11 Year
  Sex: Male

DRUGS (1)
  1. AZTREONAM LYSINE [Suspect]
     Active Substance: AZTREONAM LYSINE
     Indication: Cystic fibrosis lung
     Dosage: 75MG VIA ALTERA HANDSET EVERY 8 HOURS FOR 28 DAYS ON, 28 DAYS OFF.
     Route: 055
     Dates: start: 20220118

REACTIONS (2)
  - Cystic fibrosis respiratory infection suppression [Unknown]
  - Intentional dose omission [Unknown]

NARRATIVE: CASE EVENT DATE: 20230315
